FAERS Safety Report 13421121 (Version 9)
Quarter: 2020Q1

REPORT INFORMATION
  Report Type: Report from Study
  Country: None (occurrence: US)
  Receive Date: 20170410
  Receipt Date: 20200219
  Transmission Date: 20200409
  Serious: Yes (Hospitalization, Other)
  Sender: FDA-Public Use
  Company Number: US-ABBVIE-17K-163-1933442-00

PATIENT
  Age: 80 Year
  Sex: Male
  Weight: 60.84 kg

DRUGS (10)
  1. HUMIRA [Suspect]
     Active Substance: ADALIMUMAB
     Route: 058
  2. BENAZEPRIL [Concomitant]
     Active Substance: BENAZEPRIL HYDROCHLORIDE
     Indication: HYPERTENSION
  3. AMLODIPINE [Concomitant]
     Active Substance: AMLODIPINE BESYLATE
     Indication: HYPERTENSION
  4. HUMIRA [Suspect]
     Active Substance: ADALIMUMAB
     Indication: CROHN^S DISEASE
     Route: 058
     Dates: start: 201408
  5. HUMIRA [Suspect]
     Active Substance: ADALIMUMAB
     Route: 058
  6. HUMIRA [Suspect]
     Active Substance: ADALIMUMAB
     Route: 058
  7. HUMIRA [Suspect]
     Active Substance: ADALIMUMAB
     Route: 058
  8. LUCENTIS [Concomitant]
     Active Substance: RANIBIZUMAB
     Indication: RETINAL DEGENERATION
  9. HUMIRA [Suspect]
     Active Substance: ADALIMUMAB
     Route: 058
  10. TAMSULOSIN [Concomitant]
     Active Substance: TAMSULOSIN
     Indication: PROSTATIC DISORDER

REACTIONS (14)
  - Dry age-related macular degeneration [Not Recovered/Not Resolved]
  - Lung disorder [Unknown]
  - Glaucoma [Unknown]
  - Squamous cell carcinoma [Recovering/Resolving]
  - Weight decreased [Unknown]
  - Nephrolithiasis [Recovering/Resolving]
  - Basal cell carcinoma [Recovered/Resolved]
  - Joint injury [Unknown]
  - Fall [Unknown]
  - Retinal degeneration [Not Recovered/Not Resolved]
  - Pulmonary pain [Unknown]
  - Productive cough [Not Recovered/Not Resolved]
  - Skin maceration [Unknown]
  - Diverticulum [Not Recovered/Not Resolved]

NARRATIVE: CASE EVENT DATE: 201703
